FAERS Safety Report 22122211 (Version 1)
Quarter: 2023Q1

REPORT INFORMATION
  Report Type: Spontaneous
  Country: US (occurrence: None)
  Receive Date: 20230321
  Receipt Date: 20230321
  Transmission Date: 20230417
  Serious: No
  Sender: FDA-Public Use
  Company Number: None

PATIENT
  Age: 69 Year
  Sex: Female

DRUGS (1)
  1. TUMS [Suspect]
     Active Substance: CALCIUM CARBONATE
     Indication: Dyspepsia
     Dosage: OTHER STRENGTH : NONE;?OTHER QUANTITY : 160 TABLET(S);?FREQUENCY : AS NEEDED;?
     Route: 048
     Dates: start: 20230309, end: 20230321

REACTIONS (3)
  - Throat irritation [None]
  - Product after taste [None]
  - Product taste abnormal [None]

NARRATIVE: CASE EVENT DATE: 20230320
